FAERS Safety Report 8546524-7 (Version None)
Quarter: 2012Q3

REPORT INFORMATION
  Report Type: 
  Country: None (occurrence: None)
  Receive Date: 20120727
  Receipt Date: 20120720
  Transmission Date: 20120928
  Serious: Yes (Life-Threatening, Hospitalization)
  Sender: FDA-Public Use
  Company Number: US-ASTRAZENECA-2012SE51248

PATIENT
  Sex: Female

DRUGS (4)
  1. VIIBRYD [Suspect]
     Route: 048
  2. ALCOHOL [Suspect]
     Route: 065
  3. LATUDA [Suspect]
     Route: 065
  4. SEROQUEL [Suspect]
     Route: 048

REACTIONS (2)
  - ASPIRATION [None]
  - MULTIPLE DRUG OVERDOSE [None]
